FAERS Safety Report 7219241-3 (Version None)
Quarter: 2011Q1

REPORT INFORMATION
  Report Type: 
  Country: None (occurrence: None)
  Receive Date: 20110111
  Receipt Date: 20110102
  Transmission Date: 20110831
  Serious: Yes (Hospitalization)
  Sender: FDA-Public Use
  Company Number: US-PFIZER INC-2011000075

PATIENT
  Sex: Male
  Weight: 71.202 kg

DRUGS (2)
  1. PRISTIQ [Suspect]
     Indication: DEPRESSION
  2. PRISTIQ [Suspect]
     Indication: ANXIETY
     Dosage: 50 MG, DAILY
     Route: 048
     Dates: start: 20101201, end: 20101224

REACTIONS (1)
  - CONVULSION [None]
